FAERS Safety Report 8187213-0 (Version None)
Quarter: 2012Q1

REPORT INFORMATION
  Report Type: 
  Country: None (occurrence: None)
  Receive Date: 20120306
  Receipt Date: 20120227
  Transmission Date: 20120608
  Serious: Yes (Hospitalization)
  Sender: FDA-Public Use
  Company Number: CA-JNJFOC-20120210238

PATIENT
  Sex: Female
  Weight: 82.1 kg

DRUGS (1)
  1. REMICADE [Suspect]
     Indication: CROHN'S DISEASE
     Route: 042
     Dates: start: 20100201, end: 20110101

REACTIONS (4)
  - MALAISE [None]
  - HOSPITALISATION [None]
  - DRUG INEFFECTIVE [None]
  - MEMORY IMPAIRMENT [None]
